FAERS Safety Report 7494491-X (Version None)
Quarter: 2011Q2

REPORT INFORMATION
  Report Type: 
  Country: None (occurrence: None)
  Receive Date: 20110520
  Receipt Date: 20110516
  Transmission Date: 20111010
  Serious: Yes (Death, Hospitalization, Congenital Anomaly, Other)
  Sender: FDA-Public Use
  Company Number: US-PFIZER INC-2011105696

PATIENT
  Sex: Female
  Weight: 2.8 kg

DRUGS (1)
  1. EFFEXOR XR [Suspect]
     Dosage: 150 MG, UNK
     Route: 064
     Dates: start: 20030101

REACTIONS (11)
  - RESPIRATORY DISTRESS [None]
  - PULMONARY OEDEMA NEONATAL [None]
  - COARCTATION OF THE AORTA [None]
  - CARDIOMEGALY [None]
  - DRUG EXPOSURE DURING PREGNANCY [None]
  - HYPOPLASTIC LEFT HEART SYNDROME [None]
  - ATELECTASIS NEONATAL [None]
  - BICUSPID AORTIC VALVE [None]
  - CONGENITAL AORTIC STENOSIS [None]
  - PATENT DUCTUS ARTERIOSUS [None]
  - ATRIOVENTRICULAR SEPTAL DEFECT [None]
